FAERS Safety Report 18489900 (Version 1)
Quarter: 2020Q4

REPORT INFORMATION
  Report Type: Spontaneous
  Country: GB (occurrence: GB)
  Receive Date: 20201111
  Receipt Date: 20201111
  Transmission Date: 20210114
  Serious: Yes (Hospitalization)
  Sender: FDA-Public Use
  Company Number: NVSC2020GB300211

PATIENT
  Age: 68 Year
  Sex: Male
  Weight: 90.4 kg

DRUGS (3)
  1. FEXOFENADINE [Concomitant]
     Active Substance: FEXOFENADINE HYDROCHLORIDE
     Indication: NEPHROTIC SYNDROME
     Dosage: 1 DF, QD
     Route: 065
     Dates: start: 20200722, end: 20200905
  2. USTEKINUMAB [Concomitant]
     Active Substance: USTEKINUMAB
     Indication: NEPHROTIC SYNDROME
     Dosage: UNK (AS RX BY DERMATOLOGY  - CHECK DOSE AS NOT ON LETTERS)
     Route: 065
     Dates: start: 20200915
  3. VALSARTAN. [Suspect]
     Active Substance: VALSARTAN
     Indication: PRODUCT USED FOR UNKNOWN INDICATION
     Dosage: 80 MG, QD
     Route: 048
     Dates: start: 20200115, end: 20200210

REACTIONS (1)
  - Rhinitis [Not Recovered/Not Resolved]

NARRATIVE: CASE EVENT DATE: 20200115
